FAERS Safety Report 6480941-4 (Version None)
Quarter: 2009Q4

REPORT INFORMATION
  Report Type: 
  Country: None (occurrence: None)
  Receive Date: 20091208
  Receipt Date: 20091130
  Transmission Date: 20100525
  Serious: Yes (Other)
  Sender: FDA-Public Use
  Company Number: PHHY2008AR18121

PATIENT
  Age: 66 Year
  Sex: Female

DRUGS (7)
  1. ACLASTA [Suspect]
     Indication: OSTEOPOROSIS
     Dosage: 1 AMP
     Route: 051
     Dates: start: 20080505
  2. DIOVAN HCT [Concomitant]
     Indication: HYPERTENSION
  3. FLUOXETINE [Concomitant]
     Indication: DEPRESSION
  4. PANTOPRAZOLE [Concomitant]
     Indication: GASTRITIS
  5. DOMPERIDONE [Concomitant]
     Indication: GASTRITIS
  6. CALCIUM [Concomitant]
  7. ASPIRIN [Concomitant]

REACTIONS (4)
  - ABASIA [None]
  - BLOOD CREATINE PHOSPHOKINASE INCREASED [None]
  - BONE PAIN [None]
  - PAIN [None]
